FAERS Safety Report 25784995 (Version 1)
Quarter: 2025Q3

REPORT INFORMATION
  Report Type: Spontaneous
  Country: US (occurrence: US)
  Receive Date: 20250910
  Receipt Date: 20250910
  Transmission Date: 20251020
  Serious: Yes (Other)
  Sender: CHIESI
  Company Number: US-CHIESI-2025CHF03235

PATIENT
  Age: 0 Year
  Sex: Male

DRUGS (1)
  1. CUROSURF [Suspect]
     Active Substance: PORACTANT ALFA
     Indication: Respiratory distress
     Route: 065
     Dates: start: 20250506

REACTIONS (2)
  - Endotracheal intubation complication [Recovered/Resolved]
  - Product complaint [Recovered/Resolved]

NARRATIVE: CASE EVENT DATE: 20250507
